FAERS Safety Report 12670987 (Version 2)
Quarter: 2016Q3

REPORT INFORMATION
  Report Type: Spontaneous
  Country: US (occurrence: US)
  Receive Date: 20160822
  Receipt Date: 20160916
  Transmission Date: 20161109
  Serious: No
  Sender: FDA-Public Use
  Company Number: US-JAZZ-2016-US-006013

PATIENT
  Age: 24 Year
  Sex: Female

DRUGS (10)
  1. BIOTIN [Concomitant]
     Active Substance: BIOTIN
  2. VALACYCLOVIR HCL [Concomitant]
     Active Substance: VALACYCLOVIR HYDROCHLORIDE
  3. ZOFRAN [Concomitant]
     Active Substance: ONDANSETRON HYDROCHLORIDE
  4. XYREM [Suspect]
     Active Substance: SODIUM OXYBATE
     Dosage: 2.75 G, BID
     Route: 048
     Dates: start: 201603, end: 201603
  5. ADDERALL [Suspect]
     Active Substance: AMPHETAMINE ASPARTATE\AMPHETAMINE SULFATE\DEXTROAMPHETAMINE SACCHARATE\DEXTROAMPHETAMINE SULFATE
     Indication: PRODUCT USED FOR UNKNOWN INDICATION
  6. IMITREX [Concomitant]
     Active Substance: SUMATRIPTAN SUCCINATE
  7. XYREM [Suspect]
     Active Substance: SODIUM OXYBATE
     Indication: NARCOLEPSY
     Dosage: 2.25 G, BID
     Route: 048
     Dates: start: 201603, end: 201603
  8. MULTIVITAMINS [Concomitant]
     Active Substance: VITAMINS
  9. XYREM [Suspect]
     Active Substance: SODIUM OXYBATE
     Dosage: 3 G, BID
     Route: 048
     Dates: start: 201603
  10. ORSYTHIA [Concomitant]
     Active Substance: ETHINYL ESTRADIOL\LEVONORGESTREL

REACTIONS (10)
  - Feeling abnormal [Unknown]
  - Discomfort [Unknown]
  - Dizziness [Unknown]
  - Cough [Not Recovered/Not Resolved]
  - Nausea [Unknown]
  - Gastrointestinal motility disorder [Not Recovered/Not Resolved]
  - Pollakiuria [Recovering/Resolving]
  - Flatulence [Unknown]
  - Abdominal distension [Not Recovered/Not Resolved]
  - Decreased appetite [Not Recovered/Not Resolved]

NARRATIVE: CASE EVENT DATE: 2016
